FAERS Safety Report 5877179-8 (Version None)
Quarter: 2008Q3

REPORT INFORMATION
  Report Type: 
  Country: None (occurrence: None)
  Receive Date: 20080909
  Receipt Date: 20080909
  Transmission Date: 20090109
  Serious: Yes (Life-Threatening, Hospitalization, Other)
  Sender: FDA-Public Use
  Company Number: None

PATIENT
  Age: 30 Year
  Sex: Female
  Weight: 89.8122 kg

DRUGS (1)
  1. PLAN B [Suspect]
     Dosage: 1 PILL 24 HRS AFTER INTER PO;1 PILL 12 HOURS AFTER 1ST PO
     Route: 048
     Dates: start: 20070705, end: 20070706

REACTIONS (3)
  - ABORTION OF ECTOPIC PREGNANCY [None]
  - ECTOPIC PREGNANCY [None]
  - THERAPEUTIC RESPONSE DELAYED [None]
